FAERS Safety Report 9812866 (Version 2)
Quarter: 2014Q1

REPORT INFORMATION
  Report Type: Spontaneous
  Country: US (occurrence: US)
  Receive Date: 20140113
  Receipt Date: 20140207
  Transmission Date: 20141002
  Serious: No
  Sender: FDA-Public Use
  Company Number: US-PFIZER INC-2014010223

PATIENT
  Age: 59 Year
  Sex: Female
  Weight: 61.22 kg

DRUGS (9)
  1. LYRICA [Suspect]
     Indication: FIBROMYALGIA
     Dosage: 50 MG, 3X/DAY
     Route: 048
  2. LYRICA [Suspect]
     Indication: NERVE INJURY
  3. FLEXERIL [Concomitant]
     Dosage: 10 MG, 3X/DAY
  4. PERCOCET [Concomitant]
     Indication: PAIN
     Dosage: [ACETAMINOPHEN 10MG] /[OXYCODONE 325MG], 3X/DAY
  5. ATIVAN [Concomitant]
     Indication: NERVOUS SYSTEM DISORDER
     Dosage: 1 MG, 3X/DAY
  6. CELEXA [Concomitant]
     Indication: DEPRESSION
     Dosage: 140 MG, 1X/DAY
  7. OMEPRAZOLE [Concomitant]
     Indication: GASTROOESOPHAGEAL REFLUX DISEASE
     Dosage: 40 MG, 1X/DAY
  8. ROBAXIN [Concomitant]
     Indication: MUSCLE SPASMS
     Dosage: 500 MG, 2X/DAY
  9. ACLIDINIUM BROMIDE [Concomitant]
     Indication: CHRONIC OBSTRUCTIVE PULMONARY DISEASE
     Dosage: UNK, AS NEEDED

REACTIONS (4)
  - Headache [Unknown]
  - Migraine [Unknown]
  - Malaise [Recovered/Resolved]
  - Blood sodium decreased [Unknown]
